FAERS Safety Report 4732768-9 (Version None)
Quarter: 2005Q3

REPORT INFORMATION
  Report Type: 
  Country: None (occurrence: None)
  Receive Date: 20050803
  Receipt Date: 20050722
  Transmission Date: 20060218
  Serious: Yes (Hospitalization)
  Sender: FDA-Public Use
  Company Number: 211-008A-1

PATIENT
  Age: 74 Year
  Sex: Female

DRUGS (3)
  1. TOPOTECAN [Suspect]
     Indication: OVARIAN CANCER
     Dosage: 1.2MGM2 PER DAY
     Route: 042
     Dates: start: 20050314
  2. ACETAMINOPHEN [Concomitant]
  3. BLOOD TRANSFUSION [Concomitant]

REACTIONS (2)
  - ABDOMINAL PAIN [None]
  - ILEUS [None]
